FAERS Safety Report 12340117 (Version 3)
Quarter: 2016Q3

REPORT INFORMATION
  Report Type: Report from Study
  Country: BR (occurrence: BR)
  Receive Date: 20160506
  Receipt Date: 20160705
  Transmission Date: 20161109
  Serious: Yes (Other)
  Sender: FDA-Public Use
  Company Number: BR-BRISTOL-MYERS SQUIBB COMPANY-BMS-2016-029703

PATIENT
  Age: 45 Year
  Sex: Female

DRUGS (7)
  1. ABATACEPT [Suspect]
     Active Substance: ABATACEPT
     Indication: RHEUMATOID ARTHRITIS
     Dosage: 250 MG, QMO
     Route: 042
     Dates: start: 20160401
  2. DICLOFENAC [Concomitant]
     Active Substance: DICLOFENAC
     Indication: PRODUCT USED FOR UNKNOWN INDICATION
     Route: 065
  3. FOLIC ACID. [Concomitant]
     Active Substance: FOLIC ACID
     Indication: PRODUCT USED FOR UNKNOWN INDICATION
     Route: 065
  4. ABATACEPT [Suspect]
     Active Substance: ABATACEPT
     Dosage: 250 UNK, UNK
     Route: 042
     Dates: start: 20160417
  5. TECNOMET                           /00113801/ [Concomitant]
     Active Substance: METHOTREXATE
     Indication: PRODUCT USED FOR UNKNOWN INDICATION
     Route: 065
  6. ABATACEPT [Suspect]
     Active Substance: ABATACEPT
     Dosage: 250 UNK, UNK
     Route: 042
     Dates: start: 20160415
  7. PREDNISONE. [Concomitant]
     Active Substance: PREDNISONE
     Indication: PRODUCT USED FOR UNKNOWN INDICATION
     Route: 065

REACTIONS (10)
  - Oropharyngeal pain [Unknown]
  - Skin disorder [Unknown]
  - Atrophy [Unknown]
  - Joint swelling [Unknown]
  - Dengue fever [Unknown]
  - Headache [Unknown]
  - Pain in extremity [Unknown]
  - Chikungunya virus infection [Unknown]
  - Rhinorrhoea [Unknown]
  - Dysphonia [Unknown]

NARRATIVE: CASE EVENT DATE: 20160417
